FAERS Safety Report 18252308 (Version 1)
Quarter: 2020Q3

REPORT INFORMATION
  Report Type: Spontaneous
  Country: US (occurrence: US)
  Receive Date: 20200909
  Receipt Date: 20200909
  Transmission Date: 20201103
  Serious: No
  Sender: FDA-Public Use
  Company Number: None

PATIENT
  Age: 31 Year
  Sex: Male

DRUGS (1)
  1. ENBREL [Suspect]
     Active Substance: ETANERCEPT
     Route: 058
     Dates: start: 20200819

REACTIONS (4)
  - Therapy cessation [None]
  - Therapy change [None]
  - Neuralgia [None]
  - Headache [None]

NARRATIVE: CASE EVENT DATE: 20200901
